FAERS Safety Report 6426748-5 (Version None)
Quarter: 2009Q4

REPORT INFORMATION
  Report Type: 
  Country: None (occurrence: None)
  Receive Date: 20091020
  Receipt Date: 20090520
  Transmission Date: 20100525
  Serious: Yes (Other)
  Sender: FDA-Public Use
  Company Number: 60785

PATIENT
  Age: 31 Year
  Sex: Female
  Weight: 71.6683 kg

DRUGS (1)
  1. METHOTREXATE [Suspect]
     Indication: GESTATIONAL TROPHOBLASTIC TUMOUR
     Dosage: 28.3MG IM
     Route: 030
     Dates: start: 20090504

REACTIONS (4)
  - DIARRHOEA [None]
  - MUCOSAL INFLAMMATION [None]
  - STOMATITIS [None]
  - VISUAL IMPAIRMENT [None]
